FAERS Safety Report 23257670 (Version 1)
Quarter: 2023Q4

REPORT INFORMATION
  Report Type: Spontaneous
  Country: CN (occurrence: CN)
  Receive Date: 20231204
  Receipt Date: 20231204
  Transmission Date: 20240110
  Serious: Yes (Life-Threatening, Other)
  Sender: FDA-Public Use
  Company Number: CN-ALCON LABORATORIES-ALC2023CN005445

PATIENT
  Age: 56 Year
  Sex: Male
  Weight: 61 kg

DRUGS (2)
  1. FLUORESCEIN SODIUM [Suspect]
     Active Substance: FLUORESCEIN SODIUM
     Indication: Physical examination
     Dosage: 0.500 G, QD
     Route: 042
     Dates: start: 20231122, end: 20231122
  2. SODIUM CHLORIDE [Concomitant]
     Active Substance: SODIUM CHLORIDE
     Indication: Medication dilution
     Dosage: 2.000 ML, QD
     Route: 058
     Dates: start: 20231122, end: 20231122

REACTIONS (1)
  - Anaphylactic shock [Recovered/Resolved]

NARRATIVE: CASE EVENT DATE: 20231122
